FAERS Safety Report 25324093 (Version 1)
Quarter: 2025Q2

REPORT INFORMATION
  Report Type: Spontaneous
  Country: US (occurrence: None)
  Receive Date: 20250515
  Receipt Date: 20250515
  Transmission Date: 20250717
  Serious: Yes (Other)
  Sender: FDA-CTU
  Company Number: None

PATIENT
  Age: 68 Year
  Sex: Male
  Weight: 86.85 kg

DRUGS (13)
  1. LEXISCAN [Suspect]
     Active Substance: REGADENOSON
     Indication: Positron emission tomogram
     Dates: start: 20250514, end: 20250514
  2. METFORMIN [Concomitant]
     Active Substance: METFORMIN HYDROCHLORIDE
  3. ROSUVASTATIN [Concomitant]
     Active Substance: ROSUVASTATIN
  4. LOSARTAN [Concomitant]
     Active Substance: LOSARTAN
  5. TADALAFIL [Concomitant]
     Active Substance: TADALAFIL
  6. ASPIRIN [Concomitant]
     Active Substance: ASPIRIN
  7. D [Concomitant]
  8. TOCOPHEROL [Concomitant]
     Active Substance: TOCOPHEROL
  9. SOY EXTRACT [Concomitant]
     Active Substance: SOY EXTRACT
  10. LYCOPENE [Concomitant]
     Active Substance: LYCOPENE
  11. SELENIUM [Concomitant]
     Active Substance: SELENIUM
  12. Gamma tocopherol [Concomitant]
  13. MAGNESIUM GLYCINATE [Concomitant]
     Active Substance: MAGNESIUM GLYCINATE

REACTIONS (3)
  - Diarrhoea [None]
  - Urticaria [None]
  - Injection related reaction [None]

NARRATIVE: CASE EVENT DATE: 20250514
